FAERS Safety Report 22166078 (Version 1)
Quarter: 2023Q1

REPORT INFORMATION
  Report Type: Spontaneous
  Country: US (occurrence: None)
  Receive Date: 20230331
  Receipt Date: 20230331
  Transmission Date: 20230417
  Serious: Yes (Hospitalization)
  Sender: FDA-Public Use
  Company Number: None

PATIENT
  Age: 58 Year
  Sex: Male

DRUGS (1)
  1. GLATIRAMER ACETATE [Suspect]
     Active Substance: GLATIRAMER ACETATE
     Indication: Multiple sclerosis
     Dosage: OTHER FREQUENCY : THREE TIMES A WEEK;?
     Route: 058
     Dates: start: 20210119

REACTIONS (5)
  - Fall [None]
  - Wrist fracture [None]
  - Scapula fracture [None]
  - Rotator cuff syndrome [None]
  - Refusal of treatment by patient [None]

NARRATIVE: CASE EVENT DATE: 20230128
